FAERS Safety Report 8604198-0 (Version None)
Quarter: 2012Q3

REPORT INFORMATION
  Report Type: 
  Country: None (occurrence: None)
  Receive Date: 20120820
  Receipt Date: 20120815
  Transmission Date: 20120928
  Serious: No
  Sender: FDA-Public Use
  Company Number: US-PFIZER INC-2012199759

PATIENT
  Age: 82 Year
  Sex: Female

DRUGS (1)
  1. SUTENT [Suspect]
     Indication: RENAL CELL CARCINOMA
     Dosage: 12.5 MG, UNK
     Route: 048
     Dates: start: 20101001, end: 20120813

REACTIONS (1)
  - BLOOD CREATINE INCREASED [None]
